FAERS Safety Report 26202752 (Version 1)
Quarter: 2025Q4

REPORT INFORMATION
  Report Type: Spontaneous
  Country: US (occurrence: US)
  Receive Date: 20251226
  Receipt Date: 20251226
  Transmission Date: 20260117
  Serious: Yes (Life-Threatening, Hospitalization, Other)
  Sender: LUPIN
  Company Number: US-LUPIN PHARMACEUTICALS INC.-2025-11605

PATIENT
  Age: 19 Year
  Sex: Female

DRUGS (2)
  1. BUPROPION [Suspect]
     Active Substance: BUPROPION
     Indication: Generalised anxiety disorder
     Dosage: 60 DOSAGE FORM (60 BUPROPION TABLETS)
     Route: 061
  2. BUPROPION [Suspect]
     Active Substance: BUPROPION
     Indication: Major depression

REACTIONS (11)
  - Intentional overdose [Unknown]
  - Toxicity to various agents [Recovering/Resolving]
  - Agitation [Recovering/Resolving]
  - Hallucination, visual [Recovering/Resolving]
  - Hypotension [Recovering/Resolving]
  - Apnoea [Recovering/Resolving]
  - Unresponsive to stimuli [Recovering/Resolving]
  - Cardiotoxicity [Recovering/Resolving]
  - Nausea [Recovering/Resolving]
  - Vomiting [Recovering/Resolving]
  - Tremor [Recovering/Resolving]
